FAERS Safety Report 8056641-6 (Version None)
Quarter: 2012Q1

REPORT INFORMATION
  Report Type: 
  Country: None (occurrence: None)
  Receive Date: 20120119
  Receipt Date: 20120111
  Transmission Date: 20120608
  Serious: Yes (Other)
  Sender: FDA-Public Use
  Company Number: CHPA2012US001162

PATIENT
  Sex: Female

DRUGS (1)
  1. EXCEDRIN EXTRA STRENGTH CAPLETS [Suspect]
     Indication: HEADACHE
     Dosage: AN AVERAGE OF 4, QD
     Route: 048
     Dates: end: 20120110

REACTIONS (8)
  - INCORRECT DRUG ADMINISTRATION DURATION [None]
  - ORAL HERPES [None]
  - CYSTITIS [None]
  - PYREXIA [None]
  - KIDNEY INFECTION [None]
  - COUGH [None]
  - HEADACHE [None]
  - BACK PAIN [None]
